FAERS Safety Report 4658795-8 (Version None)
Quarter: 2005Q2

REPORT INFORMATION
  Report Type: 
  Country: None (occurrence: None)
  Receive Date: 20050509
  Receipt Date: 20050421
  Transmission Date: 20051028
  Serious: Yes (Other)
  Sender: FDA-Public Use
  Company Number: 2005062497

PATIENT
  Sex: 0

DRUGS (1)
  1. LIPITOR [Suspect]
     Indication: ILL-DEFINED DISORDER
     Dosage: 10 MG( 10 MG, 1 IN 1 D), ORAL
     Route: 048
     Dates: start: 20041208

REACTIONS (1)
  - RENAL FAILURE ACUTE [None]
